FAERS Safety Report 8001196-5 (Version None)
Quarter: 2011Q4

REPORT INFORMATION
  Report Type: 
  Country: None (occurrence: None)
  Receive Date: 20111220
  Receipt Date: 20111212
  Transmission Date: 20120403
  Serious: Yes (Other)
  Sender: FDA-Public Use
  Company Number: ACO_28468_2011

PATIENT
  Age: 68 Year
  Sex: Female

DRUGS (3)
  1. CELEXA [Concomitant]
  2. AMPYRA [Suspect]
     Indication: GAIT DISTURBANCE
     Dosage: 10 MG , Q 12 HRS
     Dates: start: 20100801
  3. COPAXONE [Concomitant]

REACTIONS (5)
  - HEAD INJURY [None]
  - WOUND [None]
  - FALL [None]
  - JOINT INJURY [None]
  - CONTUSION [None]
